FAERS Safety Report 18473751 (Version 2)
Quarter: 2021Q2

REPORT INFORMATION
  Report Type: Spontaneous
  Country: US (occurrence: US)
  Receive Date: 20201106
  Receipt Date: 20210412
  Transmission Date: 20210717
  Serious: Yes (Other)
  Sender: FDA-Public Use
  Company Number: US-PFIZER INC-2020408811

PATIENT
  Age: 65 Year
  Sex: Female
  Weight: 101.15 kg

DRUGS (4)
  1. PREGABALIN. [Suspect]
     Active Substance: PREGABALIN
     Indication: NEUROPATHY PERIPHERAL
  2. LYRICA [Suspect]
     Active Substance: PREGABALIN
     Indication: FIBROMYALGIA
     Dosage: 330 MG, DAILY
     Route: 048
  3. LYRICA [Suspect]
     Active Substance: PREGABALIN
     Indication: NEUROPATHY PERIPHERAL
  4. PREGABALIN. [Suspect]
     Active Substance: PREGABALIN
     Indication: FIBROMYALGIA
     Dosage: 150 MG, 2X/DAY (150 MG, ONE IN MORNING ONE IN THE NIGHT, BY MOUTH)
     Route: 048

REACTIONS (5)
  - Cataract [Unknown]
  - Therapeutic product effect incomplete [Unknown]
  - Body height decreased [Unknown]
  - Illness [Unknown]
  - Product prescribing error [Unknown]
